FAERS Safety Report 5602510-8 (Version None)
Quarter: 2008Q1

REPORT INFORMATION
  Report Type: 
  Country: None (occurrence: None)
  Receive Date: 20080125
  Receipt Date: 20080118
  Transmission Date: 20080703
  Serious: Yes (Death)
  Sender: FDA-Public Use
  Company Number: B0489535A

PATIENT
  Age: 92 Year
  Sex: Female
  Weight: 55 kg

DRUGS (1)
  1. ARIXTRA [Suspect]
     Indication: THROMBOSIS PROPHYLAXIS
     Dosage: 1.5MG PER DAY
     Route: 058
     Dates: start: 20070912, end: 20070925

REACTIONS (5)
  - ABDOMINAL PAIN [None]
  - DUODENAL PERFORATION [None]
  - DUODENAL ULCER [None]
  - MELAENA [None]
  - POST PROCEDURAL HAEMORRHAGE [None]
